FAERS Safety Report 12200832 (Version 3)
Quarter: 2016Q2

REPORT INFORMATION
  Report Type: Spontaneous
  Country: US (occurrence: US)
  Receive Date: 20160322
  Receipt Date: 20160428
  Transmission Date: 20160815
  Serious: Yes (Death)
  Sender: FDA-Public Use
  Company Number: US-CELGENEUS-USA-2016035044

PATIENT
  Age: 10 Year
  Sex: Male

DRUGS (5)
  1. THALOMID [Suspect]
     Active Substance: THALIDOMIDE
     Indication: MEDULLOBLASTOMA RECURRENT
     Dosage: 1000 MILLIGRAM
     Route: 048
     Dates: start: 201602, end: 20160229
  2. THALOMID [Suspect]
     Active Substance: THALIDOMIDE
     Indication: BRAIN NEOPLASM MALIGNANT
     Route: 048
     Dates: start: 20151222
  3. KEPPRA [Concomitant]
     Active Substance: LEVETIRACETAM
     Indication: SEIZURE
     Route: 065
     Dates: start: 201309, end: 20160306
  4. ETOPOSIDE. [Concomitant]
     Active Substance: ETOPOSIDE
     Indication: MEDULLOBLASTOMA RECURRENT
     Dosage: 50 MILLIGRAM
     Route: 048
     Dates: start: 20151222, end: 20160229
  5. CELECOXIB. [Concomitant]
     Active Substance: CELECOXIB
     Indication: MEDULLOBLASTOMA RECURRENT
     Dosage: 200 MILLIGRAM
     Route: 065
     Dates: start: 20151222, end: 20160229

REACTIONS (1)
  - Medulloblastoma [Fatal]

NARRATIVE: CASE EVENT DATE: 20160306
